FAERS Safety Report 13892706 (Version 1)
Quarter: 2017Q3

REPORT INFORMATION
  Report Type: Spontaneous
  Country: US (occurrence: US)
  Receive Date: 20170822
  Receipt Date: 20170822
  Transmission Date: 20171127
  Serious: No
  Sender: FDA-Public Use
  Company Number: US-ROCHE-1329122

PATIENT
  Sex: Female

DRUGS (3)
  1. HERCEPTIN [Suspect]
     Active Substance: TRASTUZUMAB
     Dosage: 11 DOSES, STARTED 6 WEEKS AGO FROM 1/2/14
     Route: 065
  2. HERCEPTIN [Suspect]
     Active Substance: TRASTUZUMAB
     Indication: BREAST CANCER
     Dosage: 12 DOSES
     Route: 065
     Dates: start: 201209
  3. TAXOL [Suspect]
     Active Substance: PACLITAXEL
     Indication: BREAST CANCER
     Dosage: 12 DOSES
     Route: 065
     Dates: start: 201209

REACTIONS (5)
  - Fatigue [Not Recovered/Not Resolved]
  - Blood potassium decreased [Unknown]
  - Dyspnoea [Not Recovered/Not Resolved]
  - Gastrointestinal motility disorder [Not Recovered/Not Resolved]
  - Ejection fraction decreased [Not Recovered/Not Resolved]
